FAERS Safety Report 17505692 (Version 1)
Quarter: 2020Q1

REPORT INFORMATION
  Report Type: Spontaneous
  Country: NL (occurrence: NL)
  Receive Date: 20200306
  Receipt Date: 20200306
  Transmission Date: 20200409
  Serious: Yes (Life-Threatening, Hospitalization, Disabling)
  Sender: FDA-Public Use
  Company Number: NL-TEVA-2020-NL-1195095

PATIENT
  Age: 67 Year
  Sex: Male
  Weight: 60 kg

DRUGS (1)
  1. TAMSULOSINE TABLET MET GEREGULEERDE AFGIFTE, 0,4 MG (MILLIGRAM) [Suspect]
     Active Substance: TAMSULOSIN HYDROCHLORIDE
     Indication: BENIGN PROSTATIC HYPERPLASIA
     Dosage: 0.4 MG
     Dates: start: 2016

REACTIONS (3)
  - Hiatus hernia [Recovered/Resolved]
  - Glaucoma [Not Recovered/Not Resolved]
  - Optic nerve disorder [Not Recovered/Not Resolved]

NARRATIVE: CASE EVENT DATE: 2019
